FAERS Safety Report 8307006-0 (Version None)
Quarter: 2012Q2

REPORT INFORMATION
  Report Type: 
  Country: None (occurrence: None)
  Receive Date: 20120424
  Receipt Date: 20120418
  Transmission Date: 20120825
  Serious: No
  Sender: FDA-Public Use
  Company Number: PHEH2012US006224

PATIENT
  Sex: Female
  Weight: 68.481 kg

DRUGS (3)
  1. GLEEVEC [Suspect]
  2. LIPITOR [Concomitant]
  3. TASIGNA [Suspect]
     Dates: start: 20120316

REACTIONS (3)
  - DIARRHOEA [None]
  - DRUG INEFFECTIVE [None]
  - MUSCLE SPASMS [None]
